FAERS Safety Report 14478942 (Version 6)
Quarter: 2018Q4

REPORT INFORMATION
  Report Type: Spontaneous
  Country: US (occurrence: US)
  Receive Date: 20180202
  Receipt Date: 20181109
  Transmission Date: 20190204
  Serious: Yes (Hospitalization)
  Sender: FDA-Public Use
  Company Number: US-PFIZER INC-2018043200

PATIENT
  Age: 76 Year
  Sex: Female

DRUGS (3)
  1. IBRANCE [Suspect]
     Active Substance: PALBOCICLIB
     Indication: BREAST CANCER FEMALE
     Dosage: 75 MG, CYCLIC (EVERY DAY FOR 21 DAYS AND THEN 7 DAYS OFF)
     Route: 048
     Dates: start: 201705, end: 20181029
  2. IBRANCE [Suspect]
     Active Substance: PALBOCICLIB
     Dosage: 75 MG, CYCLIC (DAILY FOR 21 DAYS)
     Route: 048
     Dates: start: 20180130
  3. IBRANCE [Suspect]
     Active Substance: PALBOCICLIB
     Dosage: 75 MG, CYCLIC (DAILY 21 ON 7 OFF)
     Route: 048
     Dates: start: 20171230

REACTIONS (15)
  - Decreased appetite [Unknown]
  - Alopecia [Unknown]
  - Depression [Unknown]
  - Loss of consciousness [Unknown]
  - Tongue disorder [Unknown]
  - Hypogeusia [Not Recovered/Not Resolved]
  - Fall [Unknown]
  - Glossodynia [Unknown]
  - Mouth ulceration [Unknown]
  - White blood cell count decreased [Unknown]
  - Oral pain [Unknown]
  - Dysphonia [Unknown]
  - Stomatitis [Not Recovered/Not Resolved]
  - Nausea [Unknown]
  - Psychiatric symptom [Unknown]

NARRATIVE: CASE EVENT DATE: 201801
